FAERS Safety Report 9204996 (Version 1)
Quarter: 2013Q2

REPORT INFORMATION
  Report Type: Spontaneous
  Country: JP (occurrence: JP)
  Receive Date: 20130402
  Receipt Date: 20130402
  Transmission Date: 20140414
  Serious: Yes (Other)
  Sender: FDA-Public Use
  Company Number: JP-UCBSA-081092

PATIENT
  Sex: Male

DRUGS (5)
  1. E KEPPRA [Suspect]
     Indication: EPILEPSY
     Route: 048
  2. L-CARTIN [Suspect]
     Dosage: DAILY DOSE: 1800MG
     Route: 048
     Dates: start: 201303, end: 20130311
  3. SODIUM VALPROATE [Concomitant]
     Dosage: DAILY DOSE: 700MG
     Route: 048
  4. INVEGA [Concomitant]
     Dosage: DAILY DOSE: 6MG
     Route: 048
  5. CARBAMAZEPINE [Concomitant]
     Route: 048
     Dates: start: 20130311, end: 20130320

REACTIONS (1)
  - Epilepsy [Recovered/Resolved]
